FAERS Safety Report 5798664-3 (Version None)
Quarter: 2008Q3

REPORT INFORMATION
  Report Type: 
  Country: None (occurrence: None)
  Receive Date: 20080702
  Receipt Date: 20080623
  Transmission Date: 20090109
  Serious: Yes (Hospitalization)
  Sender: FDA-Public Use
  Company Number: FR-AVENTIS-200812380FR

PATIENT
  Age: 41 Year
  Sex: Male

DRUGS (6)
  1. CISPLATYL [Suspect]
     Route: 042
     Dates: start: 20080404, end: 20080404
  2. CISPLATYL [Suspect]
     Route: 042
     Dates: start: 20080311, end: 20080311
  3. TAXOTERE [Suspect]
     Route: 042
     Dates: start: 20080404, end: 20080404
  4. TAXOTERE [Suspect]
     Route: 042
     Dates: start: 20080311, end: 20080311
  5. PREDNISOLONE [Concomitant]
  6. ONDANSETRON [Concomitant]

REACTIONS (1)
  - BLOOD CREATININE INCREASED [None]
